FAERS Safety Report 6924329-8 (Version None)
Quarter: 2010Q3

REPORT INFORMATION
  Report Type: 
  Country: None (occurrence: None)
  Receive Date: 20100811
  Receipt Date: 20100811
  Transmission Date: 20110219
  Serious: Yes (Life-Threatening, Hospitalization, Other)
  Sender: FDA-Public Use
  Company Number: None

PATIENT
  Age: 43 Year
  Sex: Female
  Weight: 52.1637 kg

DRUGS (1)
  1. CHANTIX [Suspect]
     Indication: SMOKING CESSATION THERAPY
     Dosage: 1MG 2 TIMES PER DAY PO
     Route: 048
     Dates: start: 20100624, end: 20100809

REACTIONS (10)
  - ANGER [None]
  - CHEST PAIN [None]
  - HEADACHE [None]
  - HEART RATE DECREASED [None]
  - HYPERAESTHESIA [None]
  - HYPERTENSION [None]
  - IMPAIRED WORK ABILITY [None]
  - SUICIDAL IDEATION [None]
  - VISUAL IMPAIRMENT [None]
  - VITREOUS FLOATERS [None]
